FAERS Safety Report 8760079 (Version 2)
Quarter: 2013Q2

REPORT INFORMATION
  Report Type: Spontaneous
  Country: US (occurrence: None)
  Receive Date: 20120814
  Receipt Date: 20130401
  Transmission Date: 20140414
  Serious: Yes (Death)
  Sender: FDA-Public Use
  Company Number: 2012US-004317

PATIENT
  Age: 37 Year
  Sex: Male
  Weight: 95 kg

DRUGS (14)
  1. OMONTYS (PEGINESATIDE) SOLUTION FOR INJECTION [Suspect]
     Indication: NEPHROGENIC ANAEMIA
     Route: 042
     Dates: start: 20120731, end: 20120731
  2. VENOFER [Concomitant]
  3. ZEMPLAR [Concomitant]
  4. HEPARIN [Concomitant]
  5. EPOGEN [Concomitant]
  6. COREG [Concomitant]
  7. ZANTAC [Concomitant]
  8. SYNTHROID [Concomitant]
  9. LISINOPRIL [Concomitant]
  10. NORVASC [Concomitant]
  11. ONE A DAY ENERGY VITAMIN [Concomitant]
  12. NOVOLOG FLEX PEN [Concomitant]
  13. LEVEMIR FLEX PEN [Concomitant]
  14. RENVELA [Concomitant]

REACTIONS (5)
  - Cardiac arrest [None]
  - Seizure like phenomena [None]
  - Bradycardia [None]
  - Respiratory arrest [None]
  - Blood pressure increased [None]
